FAERS Safety Report 4283557-3 (Version None)
Quarter: 2004Q1

REPORT INFORMATION
  Report Type: 
  Country: None (occurrence: None)
  Receive Date: 20040121
  Receipt Date: 20031030
  Transmission Date: 20041129
  Serious: Yes (Other)
  Sender: FDA-Public Use
  Company Number: A03200302593

PATIENT
  Sex: Female

DRUGS (2)
  1. PLAVIX [Suspect]
     Indication: ANGIOPLASTY
     Dosage: NI UNK - ORAL
     Route: 048
     Dates: start: 20030101
  2. PLAVIX [Suspect]
     Indication: PROPHYLAXIS
     Dosage: NI UNK - ORAL
     Route: 048
     Dates: start: 20030101

REACTIONS (1)
  - HAEMOLYTIC URAEMIC SYNDROME [None]
